FAERS Safety Report 8131340-0 (Version None)
Quarter: 2012Q1

REPORT INFORMATION
  Report Type: 
  Country: None (occurrence: None)
  Receive Date: 20120210
  Receipt Date: 20120210
  Transmission Date: 20120608
  Serious: Yes (Hospitalization)
  Sender: FDA-Public Use
  Company Number: None

PATIENT
  Age: 91 Year
  Sex: Male
  Weight: 82.7 kg

DRUGS (2)
  1. CLOPIDOGREL [Suspect]
     Indication: ATRIAL FIBRILLATION
     Dosage: 75 MG EVERY DAY PO
     Route: 048
     Dates: start: 20100423, end: 20100507
  2. WARFARIN SODIUM [Suspect]
     Indication: ATRIAL FIBRILLATION
     Dosage: 5 MG EVERY DAY PO
     Route: 048
     Dates: start: 20100423, end: 20100507

REACTIONS (2)
  - GASTROINTESTINAL HAEMORRHAGE [None]
  - URINARY RETENTION [None]
